FAERS Safety Report 11588451 (Version 1)
Quarter: 2015Q4

REPORT INFORMATION
  Report Type: Spontaneous
  Country: FR (occurrence: FR)
  Receive Date: 20151002
  Receipt Date: 20151002
  Transmission Date: 20160304
  Serious: Yes (Hospitalization)
  Sender: FDA-Public Use
  Company Number: FR-ROCHE-1641256

PATIENT
  Sex: Female

DRUGS (2)
  1. AVASTIN [Suspect]
     Active Substance: BEVACIZUMAB
     Indication: ADENOCARCINOMA OF COLON
     Route: 042
     Dates: start: 20150903, end: 20150903
  2. DIFFU K [Concomitant]
     Active Substance: POTASSIUM CHLORIDE

REACTIONS (4)
  - Vomiting [Unknown]
  - Tremor [Unknown]
  - Nausea [Unknown]
  - Asthenia [Unknown]
